FAERS Safety Report 6604908-8 (Version None)
Quarter: 2010Q1

REPORT INFORMATION
  Report Type: 
  Country: None (occurrence: None)
  Receive Date: 20100226
  Receipt Date: 20100218
  Transmission Date: 20100710
  Serious: Yes (Hospitalization)
  Sender: FDA-Public Use
  Company Number: B0636092A

PATIENT
  Sex: Female
  Weight: 64 kg

DRUGS (6)
  1. LAPATINIB [Suspect]
     Indication: BREAST CANCER
     Dosage: 1000MG PER DAY
     Route: 048
     Dates: start: 20090226
  2. TRASTUZUMAB [Suspect]
     Indication: BREAST CANCER
     Dosage: 2MGK WEEKLY
     Route: 042
     Dates: start: 20090226
  3. PACLITAXEL [Suspect]
     Indication: BREAST CANCER
     Dosage: 80MGM2 WEEKLY
     Route: 042
     Dates: start: 20090423
  4. FLUOROURACIL [Concomitant]
     Route: 042
     Dates: start: 20090804
  5. ETOPOSIDE [Concomitant]
     Route: 042
     Dates: start: 20090804
  6. CYCLOPHOSPHAMIDE [Concomitant]
     Route: 042
     Dates: start: 20090804

REACTIONS (6)
  - ARTERIOSCLEROSIS CORONARY ARTERY [None]
  - CARDIAC FAILURE CONGESTIVE [None]
  - CHEST PAIN [None]
  - DYSPNOEA [None]
  - DYSPNOEA AT REST [None]
  - MYOCARDIAL ISCHAEMIA [None]
